FAERS Safety Report 6930847-9 (Version None)
Quarter: 2010Q3

REPORT INFORMATION
  Report Type: 
  Country: None (occurrence: None)
  Receive Date: 20100818
  Receipt Date: 20100803
  Transmission Date: 20110219
  Serious: Yes (Other)
  Sender: FDA-Public Use
  Company Number: PHHY2009CA21626

PATIENT
  Sex: Female

DRUGS (10)
  1. SANDOSTATIN LAR [Suspect]
     Indication: ACROMEGALY
     Dosage: 20 MG, EVERY 10 DAYS
     Route: 030
     Dates: start: 20080604
  2. TRAMADOL HCL [Concomitant]
     Dosage: 2 TAB/ DAY
  3. VITAMIN D [Concomitant]
     Dosage: 1200 U, QD
  4. NAPROXEN [Concomitant]
     Dosage: 250 UNK, BID
  5. AVALIDE [Concomitant]
     Dosage: 25 MG, DAILY
     Route: 048
  6. L-THYROXIN ^HENNING BERLIN^ [Concomitant]
     Dosage: 50 MG, UNK
  7. RABEPRAZOLE SODIUM [Concomitant]
     Dosage: 20 MG, DAILY
     Route: 048
  8. VITAMIN B COMPLEX CAP [Concomitant]
  9. ASCORBIC ACID [Concomitant]
  10. OMEGA-3 FATTY ACIDS [Concomitant]

REACTIONS (4)
  - CONSTIPATION [None]
  - INSULIN-LIKE GROWTH FACTOR INCREASED [None]
  - PAIN [None]
  - THYROID HORMONE REPLACEMENT THERAPY [None]
